FAERS Safety Report 15679543 (Version 3)
Quarter: 2019Q1

REPORT INFORMATION
  Report Type: Spontaneous
  Country: US (occurrence: US)
  Receive Date: 20181203
  Receipt Date: 20190114
  Transmission Date: 20190417
  Serious: Yes (Other)
  Sender: FDA-Public Use
  Company Number: US-TEVA-2018-US-982455

PATIENT
  Sex: Female

DRUGS (1)
  1. AJOVY [Suspect]
     Active Substance: FREMANEZUMAB-VFRM
     Indication: MIGRAINE
     Dosage: PATIENT ONLY RECEIVED ONE SHOT OF AJOVY
     Route: 058

REACTIONS (2)
  - Hypersensitivity [Recovered/Resolved]
  - Swelling face [Recovered/Resolved]
